FAERS Safety Report 7427345-5 (Version None)
Quarter: 2011Q2

REPORT INFORMATION
  Report Type: 
  Country: None (occurrence: None)
  Receive Date: 20110420
  Receipt Date: 20110406
  Transmission Date: 20111010
  Serious: Yes (Hospitalization, Other)
  Sender: FDA-Public Use
  Company Number: US-JNJFOC-20110406972

PATIENT
  Age: 33 Year
  Sex: Female

DRUGS (10)
  1. RUFINAMIDE [Suspect]
     Indication: HALLUCINATION, AUDITORY
     Route: 065
  2. ZIPRASIDONE [Suspect]
     Indication: MAJOR DEPRESSION
     Route: 065
  3. ZIPRASIDONE [Suspect]
     Indication: POST-TRAUMATIC STRESS DISORDER
     Route: 065
  4. HALOPERIDOL [Suspect]
     Indication: MAJOR DEPRESSION
     Route: 065
  5. ZOLPIDEM [Suspect]
     Indication: MAJOR DEPRESSION
     Dosage: AS NEEDED
     Route: 065
  6. RUFINAMIDE [Suspect]
     Indication: COGNITIVE DISORDER
     Route: 065
  7. ZOLPIDEM [Suspect]
     Indication: POST-TRAUMATIC STRESS DISORDER
     Dosage: AS NEEDED
     Route: 065
  8. HALOPERIDOL [Suspect]
     Indication: POST-TRAUMATIC STRESS DISORDER
     Route: 065
  9. ESCITALOPRAM [Suspect]
     Indication: POST-TRAUMATIC STRESS DISORDER
     Route: 065
  10. ESCITALOPRAM [Suspect]
     Indication: MAJOR DEPRESSION
     Route: 065

REACTIONS (5)
  - HALLUCINATION, AUDITORY [None]
  - DRUG INEFFECTIVE [None]
  - SUICIDAL IDEATION [None]
  - AGITATION [None]
  - COGNITIVE DISORDER [None]
